FAERS Safety Report 20974606 (Version 10)
Quarter: 2023Q2

REPORT INFORMATION
  Report Type: Report from Study
  Country: ES (occurrence: ES)
  Receive Date: 20220617
  Receipt Date: 20230427
  Transmission Date: 20230721
  Serious: Yes (Hospitalization)
  Sender: FDA-Public Use
  Company Number: ES-NOVARTISPH-NVSC2022ES135934

PATIENT
  Age: 74 Year
  Sex: Male
  Weight: 76 kg

DRUGS (17)
  1. PLUVICTO [Suspect]
     Active Substance: LUTETIUM LU-177 VIPIVOTIDE TETRAXETAN
     Indication: Hormone-refractory prostate cancer
     Dosage: 196.39 MCI, ONCE/SINGLE
     Route: 042
     Dates: start: 20210929, end: 20220318
  2. LOCAMETZ [Suspect]
     Active Substance: PSMA-HBED-CC
     Indication: Hormone-refractory prostate cancer
     Dosage: 4.30 MCI, ONCE/SINGLE
     Route: 042
     Dates: start: 20210907
  3. NYSTATIN [Concomitant]
     Active Substance: NYSTATIN
     Indication: Oral candidiasis
     Dosage: UNK
     Route: 065
     Dates: start: 20220609
  4. METFORMIN [Concomitant]
     Active Substance: METFORMIN HYDROCHLORIDE
     Indication: Type 2 diabetes mellitus
     Dosage: UNK
     Route: 065
     Dates: start: 20211024
  5. LEUPROLIDE ACETATE [Concomitant]
     Active Substance: LEUPROLIDE ACETATE
     Indication: Hormone-refractory prostate cancer
     Dosage: UNK
     Route: 065
     Dates: start: 20211207
  6. DEXAMETHASONE [Concomitant]
     Active Substance: DEXAMETHASONE
     Indication: Hormone-refractory prostate cancer
     Dosage: UNK
     Route: 065
     Dates: start: 20220502
  7. CIPROFLOXACIN [Concomitant]
     Active Substance: CIPROFLOXACIN
     Indication: Gastroenteritis
     Dosage: UNK
     Route: 065
     Dates: start: 20220607, end: 20220610
  8. METAMIZOLE [Concomitant]
     Active Substance: METAMIZOLE
     Indication: Back pain
     Dosage: UNK
     Route: 065
     Dates: start: 20220609
  9. AMLODIPINE BESYLATE [Concomitant]
     Active Substance: AMLODIPINE BESYLATE
     Indication: Hypertension
     Route: 065
  10. BISOPROLOL [Concomitant]
     Active Substance: BISOPROLOL
     Indication: Hypertension
     Route: 065
  11. LANTUS [Concomitant]
     Active Substance: INSULIN GLARGINE
     Indication: Type 2 diabetes mellitus
     Route: 065
  12. NOVORAPID [Concomitant]
     Active Substance: INSULIN ASPART
     Indication: Type 2 diabetes mellitus
     Route: 065
  13. OMEPRAZOLE [Concomitant]
     Active Substance: OMEPRAZOLE
     Indication: Prophylaxis
     Route: 065
  14. PRAVASTATIN [Concomitant]
     Active Substance: PRAVASTATIN
     Indication: Dyslipidaemia
     Route: 065
  15. TAMSULOSIN [Concomitant]
     Active Substance: TAMSULOSIN
     Indication: Benign prostatic hyperplasia
     Route: 065
  16. VITAMIN B12 [Concomitant]
     Active Substance: CYANOCOBALAMIN
     Indication: Prophylaxis
     Route: 065
  17. METAMIZOL [Concomitant]
     Active Substance: METAMIZOLE SODIUM
     Indication: Back pain
     Dosage: UNK
     Route: 065
     Dates: start: 20220609

REACTIONS (1)
  - Dysphagia [Recovered/Resolved]

NARRATIVE: CASE EVENT DATE: 20220609
